FAERS Safety Report 18807467 (Version 1)
Quarter: 2021Q1

REPORT INFORMATION
  Report Type: Spontaneous
  Country: CH (occurrence: CH)
  Receive Date: 20210129
  Receipt Date: 20210129
  Transmission Date: 20210419
  Serious: Yes (Hospitalization, Other)
  Sender: FDA-Public Use
  Company Number: CH-JNJFOC-20210142867

PATIENT
  Age: 54 Year
  Sex: Female

DRUGS (4)
  1. HALDOL [Suspect]
     Active Substance: HALOPERIDOL
     Indication: SCHIZOPHRENIA
     Route: 048
     Dates: start: 20201001, end: 20201130
  2. XEPLION [Suspect]
     Active Substance: PALIPERIDONE PALMITATE
     Indication: SCHIZOPHRENIA
     Route: 030
     Dates: start: 20201201
  3. XEPLION [Suspect]
     Active Substance: PALIPERIDONE PALMITATE
  4. XEPLION [Suspect]
     Active Substance: PALIPERIDONE PALMITATE

REACTIONS (2)
  - Cardiomyopathy [Not Recovered/Not Resolved]
  - Bundle branch block left [Not Recovered/Not Resolved]

NARRATIVE: CASE EVENT DATE: 20201205
